FAERS Safety Report 6160801-9 (Version None)
Quarter: 2009Q2

REPORT INFORMATION
  Report Type: 
  Country: None (occurrence: None)
  Receive Date: 20090420
  Receipt Date: 20090417
  Transmission Date: 20091009
  Serious: Yes (Life-Threatening, Hospitalization, Other)
  Sender: FDA-Public Use
  Company Number: PHHY2009JP07034

PATIENT
  Sex: Female
  Weight: 44 kg

DRUGS (12)
  1. TEGRETOL [Suspect]
     Indication: HYPOAESTHESIA
     Dosage: 200 MG/DAY
     Route: 048
     Dates: start: 20090113, end: 20090119
  2. TEGRETOL [Suspect]
     Indication: POSTOPERATIVE CARE
  3. ARICEPT [Suspect]
     Indication: DEMENTIA
     Dosage: 5 MG
     Route: 048
     Dates: end: 20090120
  4. SELBEX [Concomitant]
     Dosage: 150 MG
     Route: 048
  5. SENNOSIDE [Concomitant]
     Dosage: 48 MG
     Route: 048
  6. ALINAMIN [Concomitant]
     Dosage: 75 MG
     Route: 048
  7. RENAGEL [Concomitant]
     Dosage: 1500 MG
     Route: 048
  8. SEROQUEL [Concomitant]
     Dosage: 50 MG
     Route: 048
  9. RANITIDINE HYDROCHLORIDE [Concomitant]
     Dosage: 150 MG
     Route: 048
  10. PLATIBIT [Concomitant]
     Dosage: 0.25 UG
     Route: 048
  11. MARZULENE S [Concomitant]
     Dosage: UNK
     Route: 048
  12. LOXONIN [Concomitant]
     Indication: HYPOAESTHESIA
     Dosage: 60 MG
     Route: 048
     Dates: start: 20090113

REACTIONS (25)
  - ABDOMINAL PAIN [None]
  - ALANINE AMINOTRANSFERASE DECREASED [None]
  - ARRHYTHMIA [None]
  - BLOOD ALBUMIN DECREASED [None]
  - BLOOD AMYLASE INCREASED [None]
  - BLOOD CHOLESTEROL DECREASED [None]
  - BLOOD CREATININE INCREASED [None]
  - BLOOD GLUCOSE INCREASED [None]
  - BLOOD UREA INCREASED [None]
  - BRADYCARDIA [None]
  - C-REACTIVE PROTEIN INCREASED [None]
  - CARDIAC PACEMAKER INSERTION [None]
  - CHEST PAIN [None]
  - ELECTROCARDIOGRAM P WAVE ABNORMAL [None]
  - GASTRIC ULCER [None]
  - HAEMATOCHEZIA [None]
  - HAEMODIALYSIS [None]
  - HEART RATE DECREASED [None]
  - HYPERKALAEMIA [None]
  - HYPOTENSION [None]
  - PROTEIN TOTAL DECREASED [None]
  - SICK SINUS SYNDROME [None]
  - SINUS ARREST [None]
  - SINUS BRADYCARDIA [None]
  - TACHYCARDIA [None]
